FAERS Safety Report 8225815-3 (Version None)
Quarter: 2012Q1

REPORT INFORMATION
  Report Type: 
  Country: None (occurrence: None)
  Receive Date: 20120319
  Receipt Date: 20120313
  Transmission Date: 20120608
  Serious: Yes (Other)
  Sender: FDA-Public Use
  Company Number: DSA_55142_2012

PATIENT
  Sex: Male

DRUGS (2)
  1. ORAP [Concomitant]
  2. XENAZINE [Suspect]
     Indication: PRODUCT USED FOR UNKNOWN INDICATION
     Dosage: 1 TAB IN AM, 1/2 TAB AT NOON AND 2 TABS AT NIGHT ORAL
     Route: 048
     Dates: start: 20100310, end: 20120201

REACTIONS (3)
  - CHEST PAIN [None]
  - DYSPNOEA [None]
  - SPEECH DISORDER [None]
